FAERS Safety Report 22258037 (Version 1)
Quarter: 2023Q2

REPORT INFORMATION
  Report Type: Other
  Country: US (occurrence: None)
  Receive Date: 20230427
  Receipt Date: 20230427
  Transmission Date: 20230721
  Serious: Yes (Hospitalization)
  Sender: FDA-Public Use
  Company Number: US-ROCHE-3323841

PATIENT
  Age: 26 Year
  Sex: Female
  Weight: 66.284 kg

DRUGS (1)
  1. OCREVUS [Suspect]
     Active Substance: OCRELIZUMAB
     Indication: Relapsing multiple sclerosis
     Route: 042
     Dates: start: 201910

REACTIONS (1)
  - Pelvic inflammatory disease [Recovered/Resolved]

NARRATIVE: CASE EVENT DATE: 20230217
